FAERS Safety Report 20821859 (Version 1)
Quarter: 2022Q2

REPORT INFORMATION
  Report Type: Spontaneous
  Country: BG (occurrence: BG)
  Receive Date: 20220512
  Receipt Date: 20220512
  Transmission Date: 20220721
  Serious: Yes (Other)
  Sender: FDA-Public Use
  Company Number: BG-DSJP-DSE-2022-115763

PATIENT
  Age: 70 Year
  Sex: Female

DRUGS (2)
  1. PRASUGREL HYDROCHLORIDE [Suspect]
     Active Substance: PRASUGREL HYDROCHLORIDE
     Indication: Antiplatelet therapy
     Dosage: 10 MG, QD, IN THE MORNING FOR 5 DAYS
  2. ASPIRIN [Suspect]
     Active Substance: ASPIRIN
     Indication: Antiplatelet therapy
     Dosage: 100 MG, QD, IN THE EVENING FOR 5 DAYS

REACTIONS (3)
  - Blindness [Recovered/Resolved]
  - Brain oedema [Unknown]
  - Neurotoxicity [Unknown]
